FAERS Safety Report 7585850-5 (Version None)
Quarter: 2011Q2

REPORT INFORMATION
  Report Type: 
  Country: None (occurrence: None)
  Receive Date: 20110624
  Receipt Date: 20110609
  Transmission Date: 20111010
  Serious: Yes (Hospitalization)
  Sender: FDA-Public Use
  Company Number: 2011060177

PATIENT
  Age: 50 Year
  Sex: Male

DRUGS (7)
  1. MARCUMAR [Suspect]
     Indication: SUICIDE ATTEMPT
     Dosage: INTAKE OF UNKNOWN AMOUNT, NOT ASSURED, ORAL
     Route: 048
  2. LISINOPRIL [Suspect]
     Indication: SUICIDE ATTEMPT
     Dosage: 30 DOSAGE FORMS, INTAKE NOT ASSURED, ORAL
     Route: 048
  3. LEVOTHYROXINE SODIUM [Suspect]
     Indication: SUICIDE ATTEMPT
     Dosage: INTAKE OF UNKNOWN AMOUNT, NOT ASSURED, ORAL
     Route: 048
  4. MIRTAZAPINE [Suspect]
     Indication: SUICIDE ATTEMPT
     Dosage: 10 DOSAGE FORMS, INTAKE NOT ASSURED, ORAL
     Route: 048
  5. DIGITOXIN TAB [Suspect]
     Indication: SUICIDE ATTEMPT
     Dosage: INTAKE OF UNKNOWN AMOUNT NOT ASSURED, ORAL
     Route: 048
  6. METOPROLOL SUCCINATE [Suspect]
     Indication: SUICIDE ATTEMPT
     Dosage: 10 DOSAGE FORMS, INTAKE NOT ASSURED, ORAL
     Route: 048
  7. TORSEMIDE [Suspect]
     Indication: SUICIDE ATTEMPT
     Dosage: 20 DOSAGE FORMS, INTAKE NOT ASSURED), ORAL
     Route: 048

REACTIONS (7)
  - INTENTIONAL OVERDOSE [None]
  - TACHYARRHYTHMIA [None]
  - SUICIDE ATTEMPT [None]
  - BRADYCARDIA [None]
  - DELIRIUM [None]
  - SOMNOLENCE [None]
  - HYPOTENSION [None]
